FAERS Safety Report 24091357 (Version 1)
Quarter: 2024Q3

REPORT INFORMATION
  Report Type: Report from Study
  Country: IN (occurrence: IN)
  Receive Date: 20240715
  Receipt Date: 20240715
  Transmission Date: 20241017
  Serious: Yes (Hospitalization, Other)
  Sender: INCYTE
  Company Number: IN-002147023-NVSC2024IN142951

PATIENT

DRUGS (1)
  1. RUXOLITINIB [Suspect]
     Active Substance: RUXOLITINIB
     Indication: Graft versus host disease
     Dosage: 5 MG, BID
     Route: 048
     Dates: start: 20240701

REACTIONS (10)
  - Laboratory test abnormal [Unknown]
  - Hypokalaemia [Unknown]
  - Jaundice [Unknown]
  - Oesophageal ulcer [Unknown]
  - Pallor [Unknown]
  - Obstructive airways disorder [Unknown]
  - Decreased appetite [Unknown]
  - Colitis [Unknown]
  - Diarrhoea [Unknown]
  - Oesophagitis [Unknown]

NARRATIVE: CASE EVENT DATE: 20240705
